FAERS Safety Report 4853145-6 (Version None)
Quarter: 2005Q4

REPORT INFORMATION
  Report Type: 
  Country: None (occurrence: None)
  Receive Date: 20051212
  Receipt Date: 20051205
  Transmission Date: 20060501
  Serious: Yes (Hospitalization)
  Sender: FDA-Public Use
  Company Number: T05-USA-03407-01

PATIENT
  Age: 87 Year
  Sex: Female
  Weight: 65.318 kg

DRUGS (9)
  1. LEXAPRO [Suspect]
     Indication: AGITATION
     Dosage: 10 MG QD PO
     Route: 048
     Dates: start: 20050802, end: 20050823
  2. LEXAPRO [Suspect]
     Indication: DEMENTIA ALZHEIMER'S TYPE
     Dosage: 10 MG QD PO
     Route: 048
     Dates: start: 20050802, end: 20050823
  3. LEXAPRO [Suspect]
     Indication: DEPRESSIVE SYMPTOM
     Dosage: 10 MG QD PO
     Route: 048
     Dates: start: 20050802, end: 20050823
  4. ACETAMINOPHEN [Concomitant]
  5. VICODIN [Concomitant]
  6. ATIVAN [Concomitant]
  7. DONEPEZIL HCL [Concomitant]
  8. RANITIDINE [Concomitant]
  9. TORSEMIDE [Concomitant]

REACTIONS (5)
  - AGITATION [None]
  - DEHYDRATION [None]
  - FLUID INTAKE REDUCED [None]
  - HYPERNATRAEMIA [None]
  - SEDATION [None]
